FAERS Safety Report 16701093 (Version 1)
Quarter: 2019Q3

REPORT INFORMATION
  Report Type: Spontaneous
  Country: CA (occurrence: CA)
  Receive Date: 20190814
  Receipt Date: 20190814
  Transmission Date: 20191004
  Serious: Yes (Other)
  Sender: FDA-Public Use
  Company Number: CA-AUROBINDO-AUR-APL-2019-052256

PATIENT

DRUGS (1)
  1. MIRTAZAPINE TABLET [Suspect]
     Active Substance: MIRTAZAPINE
     Indication: DEPRESSION
     Dosage: 45 MILLIGRAM
     Route: 065

REACTIONS (3)
  - Aggression [Recovered/Resolved]
  - Suicidal ideation [Recovered/Resolved]
  - Product substitution issue [Recovered/Resolved]
